FAERS Safety Report 6329901-4 (Version None)
Quarter: 2009Q3

REPORT INFORMATION
  Report Type: 
  Country: None (occurrence: None)
  Receive Date: 20090826
  Receipt Date: 20090820
  Transmission Date: 20100115
  Serious: Yes (Other)
  Sender: FDA-Public Use
  Company Number: US-GENENTECH, INC.-287653

PATIENT
  Sex: Female
  Weight: 58.957 kg

DRUGS (6)
  1. XOLAIR [Suspect]
     Indication: ASTHMA
     Dosage: 375 MG, Q2W
     Route: 058
     Dates: start: 20090519, end: 20090804
  2. XYZAL [Concomitant]
     Indication: RHINITIS
     Dosage: 10 MG, QD
     Route: 048
     Dates: start: 20090116
  3. VERAMYST [Concomitant]
     Indication: RHINITIS
     Dosage: 25 PUFF, QD
     Route: 045
     Dates: start: 20090116
  4. ADVAIR HFA [Concomitant]
     Indication: ASTHMA
     Dosage: 2 PUFF, BID
     Dates: start: 20090220
  5. SINGULAIR [Concomitant]
     Indication: ASTHMA
     Dosage: 10 MG, QD
     Route: 048
  6. PROVENTIL-HFA [Concomitant]
     Indication: ASTHMA
     Dosage: 2 PUFF, PRN

REACTIONS (2)
  - PRURITUS [None]
  - URTICARIA [None]
